FAERS Safety Report 9414561 (Version 1)
Quarter: 2013Q3

REPORT INFORMATION
  Report Type: Spontaneous
  Country: FR (occurrence: FR)
  Receive Date: 20130723
  Receipt Date: 20130723
  Transmission Date: 20140515
  Serious: Yes (Life-Threatening, Hospitalization)
  Sender: FDA-Public Use
  Company Number: FR-JNJFOC-20130710556

PATIENT
  Age: 72 Year
  Sex: Male

DRUGS (11)
  1. REMICADE [Suspect]
     Indication: POLYARTHRITIS
     Route: 042
  2. REMICADE [Suspect]
     Indication: POLYARTHRITIS
     Dosage: 5TH INFUSION, DURATION 1 DAY
     Route: 042
     Dates: start: 20130704, end: 201307
  3. KARDEGIC [Concomitant]
     Route: 065
  4. EFFIENT [Concomitant]
     Route: 065
  5. CORTANCYL [Concomitant]
     Route: 065
  6. NOVATREX NOS [Concomitant]
     Route: 065
  7. SPECIAFOLDINE [Concomitant]
     Route: 065
  8. INEXIUM [Concomitant]
     Route: 065
  9. TENORMINE [Concomitant]
     Route: 065
  10. COVERSYL [Concomitant]
     Route: 065
  11. DAFALGAN [Concomitant]
     Route: 065

REACTIONS (3)
  - Shock [Recovered/Resolved]
  - Vasospasm [Recovered/Resolved]
  - Infusion related reaction [Recovered/Resolved]
